FAERS Safety Report 22335612 (Version 1)
Quarter: 2023Q2

REPORT INFORMATION
  Report Type: Report from Study
  Country: US (occurrence: None)
  Receive Date: 20230518
  Receipt Date: 20230518
  Transmission Date: 20230722
  Serious: Yes (Other)
  Sender: FDA-Public Use
  Company Number: US-ROCHE-3349234

PATIENT

DRUGS (10)
  1. RITUXIMAB [Suspect]
     Active Substance: RITUXIMAB
     Indication: Burkitt^s lymphoma
     Dosage: SUBSEQUENT DOSES ON 26/JUL/2013, 17/AUG/2013, 07/SEP/2013, 27/SEP/2013, 18/OCT/2013
     Route: 065
     Dates: start: 20130705, end: 20130705
  2. CYCLOPHOSPHAMIDE [Suspect]
     Active Substance: CYCLOPHOSPHAMIDE
     Indication: Burkitt^s lymphoma
     Route: 065
     Dates: start: 20130709, end: 20130709
  3. CYCLOPHOSPHAMIDE [Suspect]
     Active Substance: CYCLOPHOSPHAMIDE
     Dosage: SUBSEQUENT DOSES ON 01/OCT/2013, 22/OCT/2013
     Route: 065
     Dates: start: 20130730, end: 20130730
  4. CYCLOPHOSPHAMIDE [Suspect]
     Active Substance: CYCLOPHOSPHAMIDE
     Dosage: SUBSEQUENT DOSE ON 11/SEP/2013
     Route: 065
     Dates: start: 20130821, end: 20130821
  5. DOXORUBICIN [Suspect]
     Active Substance: DOXORUBICIN
     Indication: Burkitt^s lymphoma
     Dosage: SUBSEQUENT DOSES ON 26/JUL/2013, 17/AUG/2013, 07/SEP/2013, 27/SEP/2013, 18/OCT/2013
     Route: 065
     Dates: start: 20130705, end: 20130708
  6. ETOPOSIDE [Suspect]
     Active Substance: ETOPOSIDE
     Indication: Burkitt^s lymphoma
     Dosage: SUBSEQUENT DOSES ON 26/JUL/2013, 17/AUG/2013, 07/SEP/2013, 27/SEP/2013, 18/OCT/2013
     Route: 065
     Dates: start: 20130705, end: 20130708
  7. FILGRASTIM [Suspect]
     Active Substance: FILGRASTIM
     Indication: Burkitt^s lymphoma
     Dosage: SUBSEQUENT DOSES ON 31/JUL/2013, 22/AUG/2013, 12/SEP/2013, 02/OCT/2013, 23/OCT/2013
     Route: 065
     Dates: start: 20130710, end: 20130719
  8. METHOTREXATE [Suspect]
     Active Substance: METHOTREXATE
     Indication: Burkitt^s lymphoma
     Dosage: SUBSEQUENT DOSES ON 21/AUG/2013, 06/SEP/2013, 10/SEP/2013, 27/SEP/2013, 01/OCT/2013, 18/OCT/2013, 22
     Route: 065
     Dates: start: 20130819, end: 20130819
  9. PREDNISONE [Suspect]
     Active Substance: PREDNISONE
     Indication: Burkitt^s lymphoma
     Dosage: SUBSEQUENT DOSES ON 26/JUL/2013, 17/AUG/2013, 07/SEP/2013, 27/SEP/2013, 18/OCT/2013
     Route: 065
     Dates: start: 20130705, end: 20130709
  10. VINCRISTINE [Suspect]
     Active Substance: VINCRISTINE
     Indication: Burkitt^s lymphoma
     Dosage: SUBSEQUENT DOSES ON 26/JUL/2013, 17/AUG/2013, 07/SEP/2013, 27/SEP/2013, 18/OCT/2013
     Route: 065
     Dates: start: 20130705, end: 20130708

REACTIONS (2)
  - Hypoalbuminaemia [Not Recovered/Not Resolved]
  - Syncope [Recovered/Resolved]

NARRATIVE: CASE EVENT DATE: 20130725
